FAERS Safety Report 23600787 (Version 2)
Quarter: 2024Q4

REPORT INFORMATION
  Report Type: Report from Study
  Country: FR (occurrence: FR)
  Receive Date: 20240306
  Receipt Date: 20241205
  Transmission Date: 20250115
  Serious: Yes (Hospitalization, Other)
  Sender: ALNYLAM PHARMACEUTICALS
  Company Number: FR-ALNYLAM PHARMACEUTICALS, INC.-ALN-2024-001289

PATIENT

DRUGS (1)
  1. ONPATTRO [Suspect]
     Active Substance: PATISIRAN SODIUM
     Indication: Product used for unknown indication
     Dosage: UNK
     Route: 065

REACTIONS (9)
  - Femur fracture [Unknown]
  - Surgery [Unknown]
  - Fatigue [Unknown]
  - Gait disturbance [Unknown]
  - Fall [Unknown]
  - Sensory loss [Unknown]
  - Fine motor skill dysfunction [Unknown]
  - Mobility decreased [Unknown]
  - Gait inability [Unknown]

NARRATIVE: CASE EVENT DATE: 20240209
